FAERS Safety Report 24002888 (Version 2)
Quarter: 2025Q1

REPORT INFORMATION
  Report Type: Spontaneous
  Country: JP (occurrence: JP)
  Receive Date: 20240624
  Receipt Date: 20250121
  Transmission Date: 20250409
  Serious: Yes (Death)
  Sender: AMGEN
  Company Number: JP-KISSEI-TV20240470_P_1

PATIENT
  Age: 80 Year
  Sex: Male
  Weight: 45.7 kg

DRUGS (14)
  1. TAVNEOS [Suspect]
     Active Substance: AVACOPAN
     Indication: Glomerulonephritis rapidly progressive
     Route: 048
     Dates: start: 20240513, end: 2024
  2. SULFAMETHOXAZOLE\TRIMETHOPRIM [Concomitant]
     Active Substance: SULFAMETHOXAZOLE\TRIMETHOPRIM
     Indication: Antifungal prophylaxis
     Route: 048
  3. AMINO ACIDS\DEXTROSE\ELECTROLYTES NOS\VITAMINS [Concomitant]
     Active Substance: AMINO ACIDS\DEXTROSE\ELECTROLYTES NOS\VITAMINS
     Dosage: 500 ML
     Route: 040
  4. SOLITA-T NO.2 [Concomitant]
     Dosage: 500 ML
     Route: 040
  5. AMLODIPINE BESYLATE [Concomitant]
     Active Substance: AMLODIPINE BESYLATE
     Indication: Hypertension
     Dosage: 5 MG
     Route: 048
     Dates: start: 20210623, end: 20240628
  6. FEBUXOSTAT [Concomitant]
     Active Substance: FEBUXOSTAT
     Indication: Hyperuricaemia
     Dosage: 10 MG
     Route: 048
     Dates: start: 20211109, end: 20240628
  7. FAMOTIDINE OD ME [Concomitant]
     Indication: Chronic gastritis
     Dosage: 20 MG
     Route: 048
     Dates: start: 202404, end: 20240628
  8. ELDECALCITOL [Concomitant]
     Active Substance: ELDECALCITOL
     Indication: Osteoporosis
     Dosage: 75 MUG
     Route: 048
     Dates: start: 202404, end: 20240628
  9. BELSOMRA [Concomitant]
     Active Substance: SUVOREXANT
     Indication: Insomnia
     Dosage: 15 MG
     Route: 048
     Dates: start: 202404, end: 20240628
  10. MOSAPRIDE CITRATE [Concomitant]
     Active Substance: MOSAPRIDE CITRATE
     Indication: Chronic gastritis
     Route: 048
     Dates: start: 202404, end: 20240628
  11. RISPERIDONE [Concomitant]
     Active Substance: RISPERIDONE
     Indication: Restlessness
     Dosage: .5 ML
     Route: 048
     Dates: start: 202404, end: 20240628
  12. SODIUM BICARBONATE [Concomitant]
     Active Substance: SODIUM BICARBONATE
     Indication: Hyperuricaemia
     Route: 048
     Dates: start: 202404, end: 20240628
  13. LEVOMEPROMAZINE [Concomitant]
     Active Substance: LEVOMEPROMAZINE
     Indication: Depression
     Dosage: 10 MG
     Route: 048
     Dates: start: 20240524, end: 20240721
  14. PREDNISOLONE [Concomitant]
     Active Substance: PREDNISOLONE
     Dosage: 20 MG
     Route: 065
     Dates: start: 20240408, end: 20240410

REACTIONS (5)
  - Dementia [Fatal]
  - Aspiration [Fatal]
  - Renal impairment [Fatal]
  - Marasmus [Fatal]
  - Pyrexia [Recovered/Resolved]

NARRATIVE: CASE EVENT DATE: 20240526
